FAERS Safety Report 6332505-0 (Version None)
Quarter: 2009Q3

REPORT INFORMATION
  Report Type: 
  Country: None (occurrence: None)
  Receive Date: 20090828
  Receipt Date: 20081112
  Transmission Date: 20100115
  Serious: No
  Sender: FDA-Public Use
  Company Number: A0756226A

PATIENT
  Age: 48 Year
  Sex: Female

DRUGS (3)
  1. MALARONE [Suspect]
     Indication: MALARIA
     Route: 048
  2. ALLEGRA [Concomitant]
  3. SINGULAIR [Concomitant]

REACTIONS (1)
  - INSOMNIA [None]
